FAERS Safety Report 7725040-6 (Version None)
Quarter: 2011Q3

REPORT INFORMATION
  Report Type: 
  Country: None (occurrence: None)
  Receive Date: 20110901
  Receipt Date: 20110826
  Transmission Date: 20111222
  Serious: No
  Sender: FDA-Public Use
  Company Number: US-BAYER-2011-080127

PATIENT

DRUGS (1)
  1. MAGNEVIST [Suspect]
     Dosage: UNK

REACTIONS (1)
  - INJECTION SITE REACTION [None]
